FAERS Safety Report 4903658-3 (Version None)
Quarter: 2006Q1

REPORT INFORMATION
  Report Type: 
  Country: None (occurrence: None)
  Receive Date: 20060208
  Receipt Date: 20060126
  Transmission Date: 20060701
  Serious: Yes (Life-Threatening)
  Sender: FDA-Public Use
  Company Number: CA-SANOFI-SYNTHELABO-F01200600234

PATIENT
  Sex: Female
  Weight: 73 kg

DRUGS (9)
  1. ELOXATIN [Suspect]
     Indication: COLON CANCER
     Route: 042
     Dates: start: 20060109, end: 20060109
  2. ELOXATIN [Suspect]
  3. LEUCOVORIN [Suspect]
     Route: 041
     Dates: start: 20060109, end: 20060109
  4. FLUOROURACIL [Suspect]
     Dosage: 540 MG IV BOLUS FOLLOWED BY 3225 MG IB CONTINUOUS DRIP OVER 46 HOURS
     Dates: start: 20060109, end: 20060110
  5. ONDANSETRON [Concomitant]
     Route: 042
     Dates: start: 20060109, end: 20060109
  6. DEXAMETHASONE [Concomitant]
     Route: 042
     Dates: start: 20060109, end: 20060109
  7. LIPITOR [Concomitant]
  8. ACETAMINOPHEN W/ CODEINE [Concomitant]
     Route: 048
  9. PREVACID [Concomitant]
     Route: 048

REACTIONS (3)
  - LARYNGOSPASM [None]
  - NEUROPATHY PERIPHERAL [None]
  - STRIDOR [None]
